FAERS Safety Report 11684663 (Version 4)
Quarter: 2016Q2

REPORT INFORMATION
  Report Type: Spontaneous
  Country: JP (occurrence: JP)
  Receive Date: 20151029
  Receipt Date: 20160404
  Transmission Date: 20160815
  Serious: Yes (Other)
  Sender: FDA-Public Use
  Company Number: JP-BRISTOL-MYERS SQUIBB COMPANY-BMS-2015-073054

PATIENT
  Age: 76 Year
  Sex: Female
  Weight: 42.2 kg

DRUGS (5)
  1. SUNVEPRA [Suspect]
     Active Substance: ASUNAPREVIR
     Dosage: 100 MG, QD
     Route: 048
     Dates: start: 20150310, end: 20150714
  2. SUNVEPRA [Suspect]
     Active Substance: ASUNAPREVIR
     Dosage: 100 MG, 3 TIMES/WK
     Route: 048
  3. SUNVEPRA [Suspect]
     Active Substance: ASUNAPREVIR
     Indication: CHRONIC HEPATITIS C
     Dosage: 100 MG, BID
     Route: 048
     Dates: start: 20150129, end: 20150309
  4. DAKLINZA [Suspect]
     Active Substance: DACLATASVIR
     Indication: CHRONIC HEPATITIS C
     Dosage: 60 MG, QD
     Route: 048
     Dates: start: 20150126, end: 20150714
  5. SUNVEPRA [Suspect]
     Active Substance: ASUNAPREVIR
     Dosage: 100 MG, QD
     Route: 048

REACTIONS (3)
  - Liver disorder [Recovered/Resolved]
  - Off label use [Unknown]
  - Eosinophil count increased [Recovered/Resolved]

NARRATIVE: CASE EVENT DATE: 20150224
